FAERS Safety Report 7759849-X (Version None)
Quarter: 2011Q3

REPORT INFORMATION
  Report Type: 
  Country: None (occurrence: None)
  Receive Date: 20110919
  Receipt Date: 20110915
  Transmission Date: 20111222
  Serious: Yes (Congenital Anomaly, Other)
  Sender: FDA-Public Use
  Company Number: US-AMGEN-USASP2011042499

PATIENT

DRUGS (4)
  1. ENBREL [Suspect]
     Dosage: 50 MG, QWK
     Route: 064
     Dates: start: 19980101
  2. PRENATAL VITAMINS                  /01549301/ [Concomitant]
     Dosage: UNK
     Route: 064
  3. MEDROL [Concomitant]
     Dosage: UNK
     Route: 064
  4. VICODIN [Concomitant]
     Dosage: UNK UNK, PRN
     Route: 064

REACTIONS (7)
  - VENTRICULAR SEPTAL DEFECT [None]
  - HEART DISEASE CONGENITAL [None]
  - PROCEDURAL COMPLICATION [None]
  - PULMONARY VALVE STENOSIS [None]
  - CONGENITAL ANOMALY [None]
  - DOUBLE OUTLET RIGHT VENTRICLE [None]
  - PERICARDIAL EFFUSION [None]
